FAERS Safety Report 7428648-0 (Version None)
Quarter: 2011Q2

REPORT INFORMATION
  Report Type: 
  Country: None (occurrence: None)
  Receive Date: 20110421
  Receipt Date: 20091027
  Transmission Date: 20111010
  Serious: No
  Sender: FDA-Public Use
  Company Number: 2009BI034850

PATIENT
  Age: 51 Year
  Sex: Male

DRUGS (1)
  1. TYSABRI [Suspect]
     Indication: MULTIPLE SCLEROSIS
     Route: 042
     Dates: start: 20070521

REACTIONS (5)
  - PAIN IN EXTREMITY [None]
  - FATIGUE [None]
  - BRADYPHRENIA [None]
  - MULTIPLE SCLEROSIS RELAPSE [None]
  - ASTHENIA [None]
